FAERS Safety Report 10269454 (Version 2)
Quarter: 2014Q3

REPORT INFORMATION
  Report Type: Spontaneous
  Country: US (occurrence: US)
  Receive Date: 20140701
  Receipt Date: 20140806
  Transmission Date: 20150326
  Serious: Yes (Hospitalization)
  Sender: FDA-Public Use
  Company Number: US-BIOGENIDEC-2014BI061327

PATIENT
  Sex: Female

DRUGS (1)
  1. AVONEX [Suspect]
     Active Substance: INTERFERON BETA-1A
     Indication: MULTIPLE SCLEROSIS
     Route: 030
     Dates: start: 20140319, end: 20140527

REACTIONS (13)
  - Amnesia [Not Recovered/Not Resolved]
  - Loss of control of legs [Not Recovered/Not Resolved]
  - Fall [Recovered/Resolved]
  - Blood glucose abnormal [Unknown]
  - Hemiparesis [Not Recovered/Not Resolved]
  - Muscle spasms [Not Recovered/Not Resolved]
  - Vomiting [Unknown]
  - Multiple sclerosis [Not Recovered/Not Resolved]
  - Myalgia [Unknown]
  - Anaemia [Unknown]
  - Mental impairment [Not Recovered/Not Resolved]
  - Upper gastrointestinal haemorrhage [Unknown]
  - Diarrhoea [Unknown]
